FAERS Safety Report 23526899 (Version 1)
Quarter: 2024Q1

REPORT INFORMATION
  Report Type: Report from Study
  Country: CA (occurrence: CA)
  Receive Date: 20240215
  Receipt Date: 20240215
  Transmission Date: 20240410
  Serious: Yes (Hospitalization)
  Sender: FDA-Public Use
  Company Number: CA-UCBSA-2024007063

PATIENT
  Sex: Female

DRUGS (2)
  1. CERTOLIZUMAB PEGOL [Suspect]
     Active Substance: CERTOLIZUMAB PEGOL
     Indication: Psoriasis
     Dosage: 400 MILLIGRAM, EV 2 WEEKS(QOW)
     Route: 058
     Dates: start: 20231013
  2. METHOTREXATE [Concomitant]
     Active Substance: METHOTREXATE
     Indication: Pregnancy
     Dosage: UNK

REACTIONS (3)
  - Ruptured ectopic pregnancy [Unknown]
  - Salpingectomy [Unknown]
  - Maternal exposure during pregnancy [Unknown]
